FAERS Safety Report 5521747-X (Version None)
Quarter: 2007Q4

REPORT INFORMATION
  Report Type: 
  Country: None (occurrence: None)
  Receive Date: 20071120
  Receipt Date: 20071108
  Transmission Date: 20080405
  Serious: Yes (Disabling)
  Sender: FDA-Public Use
  Company Number: US-KINGPHARMUSA00001-K200701441

PATIENT

DRUGS (2)
  1. ALTACE [Suspect]
     Indication: HYPERTENSION
     Dates: start: 20041001
  2. ATENOLOL [Concomitant]
     Route: 048

REACTIONS (2)
  - HERPES SIMPLEX OPHTHALMIC [None]
  - KERATITIS [None]
